FAERS Safety Report 23242231 (Version 1)
Quarter: 2023Q4

REPORT INFORMATION
  Report Type: Spontaneous
  Country: FR (occurrence: FR)
  Receive Date: 20231129
  Receipt Date: 20231129
  Transmission Date: 20240110
  Serious: Yes (Other)
  Sender: FDA-Public Use
  Company Number: None

PATIENT
  Age: 27 Year
  Sex: Male

DRUGS (1)
  1. LYRICA [Suspect]
     Active Substance: PREGABALIN
     Indication: Product used for unknown indication
     Dosage: 600 MILLIGRAM,(REGULARLY TAKEN,600 MG ON THE EPISODE)
     Route: 048

REACTIONS (3)
  - Drug use disorder [Not Recovered/Not Resolved]
  - Seizure [Unknown]
  - Dyskinesia [Unknown]

NARRATIVE: CASE EVENT DATE: 20231001
